FAERS Safety Report 6299982-5 (Version None)
Quarter: 2009Q3

REPORT INFORMATION
  Report Type: 
  Country: None (occurrence: None)
  Receive Date: 20090806
  Receipt Date: 20090731
  Transmission Date: 20100115
  Serious: No
  Sender: FDA-Public Use
  Company Number: US-B.I. PHARMACEUTICALS,INC./RIDGEFIELD-2009-BP-08394BP

PATIENT
  Sex: Male

DRUGS (4)
  1. FLOMAX [Suspect]
     Indication: BENIGN PROSTATIC HYPERPLASIA
     Dosage: 0.4 MG
     Route: 048
     Dates: start: 20081220, end: 20081223
  2. FLOMAX [Suspect]
     Indication: PROSTATOMEGALY
  3. FLOMAX [Suspect]
     Indication: MICTURITION URGENCY
  4. METFORMIN HYDROCHLORIDE [Concomitant]
     Indication: DIABETES MELLITUS

REACTIONS (1)
  - RASH GENERALISED [None]
